FAERS Safety Report 6961746-4 (Version None)
Quarter: 2010Q3

REPORT INFORMATION
  Report Type: 
  Country: None (occurrence: None)
  Receive Date: 20100901
  Receipt Date: 20100823
  Transmission Date: 20110219
  Serious: Yes (Hospitalization, Other)
  Sender: FDA-Public Use
  Company Number: PHHY2010MX56334

PATIENT
  Age: 81 Year
  Sex: Male

DRUGS (2)
  1. DIOVAN [Suspect]
     Indication: HYPERTENSION
     Dosage: 1 TABLET (80 MG) DAILY
     Route: 048
     Dates: end: 20100501
  2. CENTRUM SILVER [Concomitant]

REACTIONS (3)
  - BLOOD PRESSURE DECREASED [None]
  - COLON NEOPLASM [None]
  - COLON OPERATION [None]
